FAERS Safety Report 8970827 (Version 1)
Quarter: 2012Q4

REPORT INFORMATION
  Report Type: Report from Study
  Country: CA (occurrence: CA)
  Receive Date: 20121218
  Receipt Date: 20121218
  Transmission Date: 20130627
  Serious: Yes (Other)
  Sender: FDA-Public Use
  Company Number: CA-ROCHE-1166814

PATIENT
  Sex: Female

DRUGS (3)
  1. OMALIZUMAB [Suspect]
     Indication: ASTHMA
     Route: 065
     Dates: start: 20051024
  2. AERIUS [Concomitant]
  3. ADVAIR [Concomitant]

REACTIONS (12)
  - Hypersensitivity [Unknown]
  - Asthma [Unknown]
  - Respiratory tract infection [Unknown]
  - Influenza [Unknown]
  - Sputum discoloured [Unknown]
  - Asthenia [Unknown]
  - Malaise [Unknown]
  - Secretion discharge [Unknown]
  - Pulmonary congestion [Unknown]
  - Mouth breathing [Unknown]
  - Fatigue [Unknown]
  - Headache [Unknown]
